FAERS Safety Report 7124600-3 (Version None)
Quarter: 2010Q4

REPORT INFORMATION
  Report Type: 
  Country: None (occurrence: None)
  Receive Date: 20101122
  Receipt Date: 20101122
  Transmission Date: 20110411
  Serious: No
  Sender: FDA-Public Use
  Company Number: None

PATIENT
  Age: 38 Year
  Sex: Female
  Weight: 90.7194 kg

DRUGS (2)
  1. PAXIL [Suspect]
     Indication: INSOMNIA
     Dosage: 25 MG ONCE A DAY PO
     Route: 048
     Dates: start: 20011210, end: 20011214
  2. PAXIL [Suspect]
     Indication: SEDATION
     Dosage: 25 MG ONCE A DAY PO
     Route: 048
     Dates: start: 20011210, end: 20011214

REACTIONS (1)
  - NO ADVERSE EVENT [None]
